APPROVED DRUG PRODUCT: QUINIDINE SULFATE
Active Ingredient: QUINIDINE SULFATE
Strength: 300MG
Dosage Form/Route: TABLET;ORAL
Application: A089839 | Product #001
Applicant: CHARTWELL RX SCIENCES LLC
Approved: Sep 29, 1988 | RLD: No | RS: No | Type: DISCN